FAERS Safety Report 7398073-X (Version None)
Quarter: 2011Q2

REPORT INFORMATION
  Report Type: 
  Country: None (occurrence: None)
  Receive Date: 20110406
  Receipt Date: 20110330
  Transmission Date: 20111010
  Serious: Yes (Hospitalization)
  Sender: FDA-Public Use
  Company Number: JP-ABBOTT-11P-087-0709764-00

PATIENT
  Age: 36 Year
  Sex: Female
  Weight: 52 kg

DRUGS (16)
  1. PREDNISOLONE [Concomitant]
     Indication: PROPHYLAXIS AGAINST GRAFT VERSUS HOST DISEASE
     Route: 048
     Dates: start: 20090729
  2. LANSOPRAZOLE [Suspect]
     Indication: REFLUX OESOPHAGITIS
     Route: 048
     Dates: start: 20081106, end: 20100610
  3. PREDNISOLONE [Concomitant]
     Route: 048
     Dates: start: 20091218
  4. PREDNISOLONE [Concomitant]
     Route: 048
  5. PREDNISOLONE [Concomitant]
     Route: 048
     Dates: end: 20100612
  6. TACROLIMUS [Suspect]
     Indication: PROPHYLAXIS AGAINST GRAFT VERSUS HOST DISEASE
     Route: 048
     Dates: start: 20090701, end: 20100610
  7. PREDNISOLONE [Concomitant]
     Route: 048
  8. CYTARABINE [Concomitant]
     Indication: ACUTE MYELOID LEUKAEMIA
     Route: 050
     Dates: start: 20080101
  9. ITRACONAZOLE [Concomitant]
     Indication: PROPHYLAXIS
  10. METHOTREXATE [Concomitant]
     Indication: PROPHYLAXIS AGAINST GRAFT VERSUS HOST DISEASE
     Route: 065
     Dates: start: 20090101
  11. PREDNISOLONE [Concomitant]
     Route: 048
  12. PREDNISOLONE [Concomitant]
     Route: 048
     Dates: start: 20091030, end: 20091217
  13. KLARICID [Suspect]
     Indication: PNEUMONIA
  14. ITRACONAZOLE [Concomitant]
     Indication: FUNGAL INFECTION
     Route: 048
     Dates: start: 20090729, end: 20100610
  15. CYCLOSPORINE [Concomitant]
     Indication: PROPHYLAXIS AGAINST GRAFT VERSUS HOST DISEASE
     Route: 065
     Dates: start: 20090101, end: 20090701
  16. IDARUBICIN HYDROCHLORIDE [Concomitant]
     Indication: ACUTE MYELOID LEUKAEMIA
     Route: 050
     Dates: start: 20080101

REACTIONS (3)
  - HERPES ZOSTER [None]
  - ACUTE GRAFT VERSUS HOST DISEASE IN SKIN [None]
  - EOSINOPHILIC PNEUMONIA [None]
